FAERS Safety Report 9794667 (Version 1)
Quarter: 2014Q1

REPORT INFORMATION
  Report Type: Report from Study
  Country: NL (occurrence: NL)
  Receive Date: 20140102
  Receipt Date: 20140102
  Transmission Date: 20141002
  Serious: Yes (Hospitalization)
  Sender: FDA-Public Use
  Company Number: NL-ABBVIE-14P-114-1185522-00

PATIENT
  Age: 77 Year
  Sex: Male
  Weight: 69 kg

DRUGS (13)
  1. LUCRIN [Suspect]
     Indication: PROSTATE CANCER
     Route: 058
     Dates: start: 20110824
  2. OMEPRAZOLE CAPSULE EC [Concomitant]
     Indication: PROPHYLAXIS
     Route: 048
  3. OMEPRAZOLE CAPSULE EC [Concomitant]
     Indication: GASTRIC DISORDER
  4. FRAGMIN [Concomitant]
     Indication: ANTICOAGULANT THERAPY
     Dosage: 25000IE/0.6ML
     Route: 058
     Dates: start: 20131231
  5. ACENOCOUMAROL [Concomitant]
     Indication: ANTICOAGULANT THERAPY
     Route: 048
     Dates: start: 20131213, end: 20131231
  6. AMIODARON [Concomitant]
     Indication: PALPITATIONS
     Route: 048
  7. AMIODARON [Concomitant]
     Indication: PROPHYLAXIS
  8. METOPROLOL SUCCINATE [Concomitant]
     Indication: PALPITATIONS
     Route: 048
  9. RAMIPRIL [Concomitant]
     Indication: PALPITATIONS
     Route: 048
  10. TRAMSULOSINE [Concomitant]
     Indication: PROSTATE CANCER
     Route: 048
  11. AVODART [Concomitant]
     Indication: PROSTATE CANCER
     Route: 048
  12. PREDNISOLONE [Concomitant]
     Indication: CHEMOTHERAPY
     Route: 048
     Dates: start: 201301
  13. PARACETAMOL [Concomitant]
     Indication: PAIN
     Dates: start: 201312

REACTIONS (2)
  - Palpitations [Recovering/Resolving]
  - Pneumonia [Recovering/Resolving]
